FAERS Safety Report 5677476-5 (Version None)
Quarter: 2008Q1

REPORT INFORMATION
  Report Type: 
  Country: None (occurrence: None)
  Receive Date: 20080324
  Receipt Date: 20080312
  Transmission Date: 20080703
  Serious: Yes (Other)
  Sender: FDA-Public Use
  Company Number: CA-PFIZER INC-2008023851

PATIENT
  Sex: Male

DRUGS (6)
  1. LYRICA [Suspect]
     Route: 048
  2. GLYBURIDE [Concomitant]
  3. AMITRIPTYLINE HCL [Concomitant]
     Dosage: DAILY DOSE:50MG
  4. CESAMET [Concomitant]
     Dosage: DAILY DOSE:.5MG
  5. ASPIRIN [Concomitant]
  6. LIPITOR [Concomitant]

REACTIONS (1)
  - BLOOD GLUCOSE INCREASED [None]
